FAERS Safety Report 6603310-2 (Version None)
Quarter: 2010Q1

REPORT INFORMATION
  Report Type: 
  Country: None (occurrence: None)
  Receive Date: 20100226
  Receipt Date: 20090707
  Transmission Date: 20100710
  Serious: No
  Sender: FDA-Public Use
  Company Number: A0762842A

PATIENT
  Age: 34 Year
  Sex: Female

DRUGS (13)
  1. VALTREX [Suspect]
     Indication: GENITAL HERPES
     Dosage: 500MG PER DAY
     Route: 048
     Dates: start: 20070101
  2. PAXIL [Concomitant]
  3. LOESTRIN 1.5/30 [Concomitant]
  4. FERROUS GLUCONATE [Concomitant]
  5. VITAMIN [Concomitant]
  6. TYLENOL-500 [Concomitant]
  7. VIT B12 INJECTION [Concomitant]
  8. ALLERGY INJECTIONS [Concomitant]
  9. PROZAC [Concomitant]
  10. GLUCONATE [Concomitant]
  11. ABILIFY [Concomitant]
  12. AMBIEN [Concomitant]
  13. CHILDREN'S MULTI VIT [Concomitant]

REACTIONS (3)
  - ACTIVITIES OF DAILY LIVING IMPAIRED [None]
  - DYSPEPSIA [None]
  - WRONG TECHNIQUE IN DRUG USAGE PROCESS [None]
